FAERS Safety Report 20204733 (Version 1)
Quarter: 2021Q4

REPORT INFORMATION
  Report Type: Spontaneous
  Country: US (occurrence: US)
  Receive Date: 20211220
  Receipt Date: 20211220
  Transmission Date: 20220304
  Serious: Yes (Death, Hospitalization)
  Sender: FDA-Public Use
  Company Number: US-JNJFOC-20211219309

PATIENT
  Age: 43 Year
  Sex: Female
  Weight: 104 kg

DRUGS (3)
  1. ACETAMINOPHEN [Suspect]
     Active Substance: ACETAMINOPHEN
     Indication: Suicide attempt
     Dosage: ACETAMINOPHEN 50000 MG ONCE ON 01/SEP/2002
     Route: 048
     Dates: start: 20020901, end: 20020901
  2. ROBITUSSIN DM [Concomitant]
     Active Substance: DEXTROMETHORPHAN HYDROBROMIDE\GUAIFENESIN
     Indication: Cough
     Dosage: 500 MG/DAY FOR 60 MONTHS
     Route: 065
     Dates: end: 20020901
  3. BUSPAR [Concomitant]
     Active Substance: BUSPIRONE HYDROCHLORIDE
     Indication: Product used for unknown indication
     Dosage: 15 MG/DAY FOR 1 MONTH
     Route: 065
     Dates: end: 20020901

REACTIONS (12)
  - Completed suicide [Fatal]
  - Cardiac arrest [Fatal]
  - Brain injury [Fatal]
  - Bradycardia [Fatal]
  - Atelectasis [Fatal]
  - Pulmonary congestion [Fatal]
  - Pneumonia [Fatal]
  - Beta haemolytic streptococcal infection [Unknown]
  - Acute hepatic failure [Fatal]
  - Respiratory failure [Fatal]
  - Acute kidney injury [Fatal]
  - Intentional overdose [Fatal]

NARRATIVE: CASE EVENT DATE: 20020904
